FAERS Safety Report 4316579-4 (Version None)
Quarter: 2004Q1

REPORT INFORMATION
  Report Type: 
  Country: None (occurrence: None)
  Receive Date: 20040312
  Receipt Date: 20040223
  Transmission Date: 20041129
  Serious: No
  Sender: FDA-Public Use
  Company Number: 2004BL000210

PATIENT
  Age: 75 Year
  Sex: Female

DRUGS (4)
  1. NEOMYCIN AND POLYMXIN B SULFATES AND HYDROCORTISONE [Suspect]
     Indication: NECK PAIN
     Dosage: 5 GTT; ONCE A DAY; RIGHT EAR
     Dates: start: 20031031, end: 20031031
  2. SYNTHROID [Concomitant]
  3. ^WATER PILL^ [Concomitant]
  4. POTASSIUM [Concomitant]

REACTIONS (4)
  - DEAFNESS UNILATERAL [None]
  - DEPRESSION [None]
  - DRUG HYPERSENSITIVITY [None]
  - HYPOAESTHESIA [None]
